FAERS Safety Report 20109870 (Version 1)
Quarter: 2021Q4

REPORT INFORMATION
  Report Type: Spontaneous
  Country: US (occurrence: US)
  Receive Date: 20211124
  Receipt Date: 20211124
  Transmission Date: 20220303
  Serious: Yes (Hospitalization, Other)
  Sender: FDA-Public Use
  Company Number: US-BRISTOL-MYERS SQUIBB COMPANY-BMS-2021-123690

PATIENT
  Age: 68 Year
  Sex: Male

DRUGS (5)
  1. APIXABAN [Interacting]
     Active Substance: APIXABAN
     Indication: Cerebrovascular accident prophylaxis
     Dosage: 5 MILLIGRAM, BID
     Route: 048
  2. APIXABAN [Interacting]
     Active Substance: APIXABAN
     Dosage: HALF THE DOSE
     Route: 048
  3. APIXABAN [Interacting]
     Active Substance: APIXABAN
     Dosage: 5 MILLIGRAM, BID
     Route: 048
  4. ASPIRIN [Suspect]
     Active Substance: ASPIRIN
     Indication: Product used for unknown indication
     Dosage: 81 MILLIGRAM
     Route: 065
  5. AZITHROMYCIN [Interacting]
     Active Substance: AZITHROMYCIN
     Indication: Influenza like illness
     Dosage: 250 MILLIGRAM,DAILY
     Route: 065

REACTIONS (3)
  - Abdominal wall haematoma [Recovering/Resolving]
  - Drug interaction [Recovering/Resolving]
  - Intentional product use issue [Unknown]
